FAERS Safety Report 17706557 (Version 1)
Quarter: 2020Q2

REPORT INFORMATION
  Report Type: Report from Study
  Country: CA (occurrence: CA)
  Receive Date: 20200424
  Receipt Date: 20200424
  Transmission Date: 20200714
  Serious: Yes (Other)
  Sender: FDA-Public Use
  Company Number: NVSC2020CA103757

PATIENT
  Sex: Male

DRUGS (18)
  1. DAUNORUBICIN [Suspect]
     Active Substance: DAUNORUBICIN
     Indication: ACUTE MYELOID LEUKAEMIA
     Dosage: 50 MG/M2/DOSE DAYS 1, 3 AND 5 (CYCLE 1)
     Route: 065
  2. RYDAPT [Suspect]
     Active Substance: MIDOSTAURIN
     Dosage: 15 MG/M2, BID
     Route: 048
     Dates: start: 20200313
  3. ETOPOSIDE. [Suspect]
     Active Substance: ETOPOSIDE
     Dosage: 100 MG/M2, UNKNOWN (DOSE DAYS 1-5)
     Route: 065
     Dates: start: 2017
  4. CYTARABINE. [Suspect]
     Active Substance: CYTARABINE
     Dosage: 100 MG/M2/DOSE EVERY 12 HOURS DAYS 1-8, (CYCLE 2)
     Route: 065
     Dates: start: 2017
  5. FLUDARABINE [Suspect]
     Active Substance: FLUDARABINE PHOSPHATE
     Indication: ACUTE MYELOID LEUKAEMIA
     Dosage: 30 MG/M2, QD FOR 5 DAYS
     Route: 065
  6. CYTARABINE. [Suspect]
     Active Substance: CYTARABINE
     Dosage: 1000 MG/M2/ DOSE EVERY 12 HOURS DAYS 1-5 (CYCLE 3)
     Route: 065
     Dates: start: 2017
  7. CYCLOPHOSPHAMIDE. [Suspect]
     Active Substance: CYCLOPHOSPHAMIDE
     Indication: ACUTE MYELOID LEUKAEMIA
     Dosage: UNK
     Route: 065
     Dates: start: 2017
  8. CYTARABINE. [Suspect]
     Active Substance: CYTARABINE
     Dosage: 100 MG/M2/DOSE EVERY 12 HOURS DAYS 1-10, (CYCLE 1)
     Route: 065
     Dates: start: 2017
  9. FILGRASTIM [Suspect]
     Active Substance: FILGRASTIM
     Indication: ACUTE MYELOID LEUKAEMIA
     Dosage: 5 MCG/M2/DAY FOR 7 DAYS.
     Route: 065
     Dates: start: 2019
  10. SORAFENIB [Suspect]
     Active Substance: SORAFENIB
     Dosage: 200 MG/M2, QD
     Route: 065
     Dates: start: 201911
  11. ETOPOSIDE. [Suspect]
     Active Substance: ETOPOSIDE
     Indication: ACUTE MYELOID LEUKAEMIA
     Dosage: 100 MG/M2, UNKNOWN (DOSE DAYS 1-5)
     Route: 065
     Dates: start: 2017
  12. CYTARABINE. [Suspect]
     Active Substance: CYTARABINE
     Indication: ACUTE MYELOID LEUKAEMIA
     Dosage: 2000 MG/M2/DAY FOR 5 DAYS
     Route: 065
     Dates: start: 2017
  13. DAUNORUBICIN [Suspect]
     Active Substance: DAUNORUBICIN
     Dosage: 50 MG/M2/DOSE DAYS 1, 3 AND 5 (CYCLE 2)
     Route: 065
  14. BUSULFAN. [Suspect]
     Active Substance: BUSULFAN
     Indication: ACUTE MYELOID LEUKAEMIA
     Dosage: UNK
     Route: 065
  15. RYDAPT [Suspect]
     Active Substance: MIDOSTAURIN
     Indication: ACUTE MYELOID LEUKAEMIA
     Dosage: 15 MG, UNKNOWN
     Route: 048
     Dates: start: 2017, end: 2017
  16. THYMOGLOBULIN [Suspect]
     Active Substance: LAPINE T-LYMPHOCYTE IMMUNE GLOBULIN
     Indication: ACUTE MYELOID LEUKAEMIA
     Dosage: UNK
     Route: 065
  17. RYDAPT [Suspect]
     Active Substance: MIDOSTAURIN
     Dosage: 30 MG/M2, UNKNOWN
     Route: 048
     Dates: start: 20200313
  18. SORAFENIB [Suspect]
     Active Substance: SORAFENIB
     Indication: ACUTE MYELOID LEUKAEMIA
     Dosage: UNK
     Route: 065
     Dates: start: 201709, end: 201809

REACTIONS (6)
  - Skin toxicity [Recovered/Resolved with Sequelae]
  - Acute myeloid leukaemia recurrent [Recovered/Resolved with Sequelae]
  - Pancytopenia [Recovered/Resolved with Sequelae]
  - Lymphadenopathy [Recovered/Resolved with Sequelae]
  - Drug intolerance [Unknown]
  - Bone marrow failure [Recovered/Resolved with Sequelae]
